FAERS Safety Report 23820355 (Version 2)
Quarter: 2024Q3

REPORT INFORMATION
  Report Type: Spontaneous
  Country: DE (occurrence: DE)
  Receive Date: 20240506
  Receipt Date: 20240720
  Transmission Date: 20241016
  Serious: Yes (Hospitalization, Other)
  Sender: TEVA
  Company Number: DE-TEVA-VS-3192564

PATIENT
  Age: 83 Year
  Sex: Male

DRUGS (1)
  1. ALLOPURINOL [Suspect]
     Active Substance: ALLOPURINOL
     Indication: Blood uric acid increased
     Route: 065
     Dates: end: 202401

REACTIONS (3)
  - Polyneuropathy [Unknown]
  - Fall [Unknown]
  - Wound necrosis [Not Recovered/Not Resolved]
